FAERS Safety Report 20527142 (Version 1)
Quarter: 2022Q1

REPORT INFORMATION
  Report Type: Spontaneous
  Country: US (occurrence: US)
  Receive Date: 20220228
  Receipt Date: 20220228
  Transmission Date: 20220423
  Serious: Yes (Other)
  Sender: FDA-Public Use
  Company Number: US-NOVARTISPH-NVSC2022US046361

PATIENT
  Age: 43 Year
  Sex: Male

DRUGS (6)
  1. RANITIDINE [Suspect]
     Active Substance: RANITIDINE
     Dosage: 150 MG  ,,DAILY,3 TIMES/DAY
     Route: 048
     Dates: start: 201601, end: 201901
  2. RANITIDINE [Suspect]
     Active Substance: RANITIDINE
     Indication: Gastric ulcer
  3. RANITIDINE [Suspect]
     Active Substance: RANITIDINE
     Indication: Gastritis
  4. RANITIDINE [Suspect]
     Active Substance: RANITIDINE
     Dosage: 150 MG  ,,DAILY,3 TIMES/DAY
     Route: 048
     Dates: start: 201601, end: 201901
  5. RANITIDINE [Suspect]
     Active Substance: RANITIDINE
     Indication: Gastric ulcer
  6. RANITIDINE [Suspect]
     Active Substance: RANITIDINE
     Indication: Gastritis

REACTIONS (2)
  - Renal cancer [Unknown]
  - Incorrect dose administered [Unknown]

NARRATIVE: CASE EVENT DATE: 20190601
